APPROVED DRUG PRODUCT: ISOTRETINOIN
Active Ingredient: ISOTRETINOIN
Strength: 40MG
Dosage Form/Route: CAPSULE;ORAL
Application: A205063 | Product #006 | TE Code: AB2
Applicant: ACTAVIS LABORATORIES FL INC AN INDIRECT WHOLLY OWNED SUB OF TEVA PHARMACEUTICALS USA INC
Approved: Mar 31, 2021 | RLD: No | RS: No | Type: RX